FAERS Safety Report 9954398 (Version 2)
Quarter: 2014Q2

REPORT INFORMATION
  Report Type: Spontaneous
  Country: US (occurrence: CH)
  Receive Date: 20140304
  Receipt Date: 20140508
  Transmission Date: 20141212
  Serious: Yes (Other)
  Sender: FDA-Public Use
  Company Number: 2014SP000647

PATIENT
  Age: 24 Year
  Sex: Female
  Weight: 64 kg

DRUGS (3)
  1. LATUDA [Suspect]
     Indication: PSYCHOTIC DISORDER
     Route: 048
     Dates: start: 20131203
  2. LATUDA [Suspect]
     Indication: PSYCHOTIC DISORDER
     Route: 048
     Dates: start: 20131118, end: 20131202
  3. CYMBALTA [Concomitant]
     Dates: start: 20131126

REACTIONS (3)
  - Swollen tongue [Recovered/Resolved]
  - Dyspnoea [Recovered/Resolved]
  - Tongue spasm [Recovered/Resolved]
